FAERS Safety Report 7968000-2 (Version None)
Quarter: 2011Q4

REPORT INFORMATION
  Report Type: 
  Country: None (occurrence: None)
  Receive Date: 20111209
  Receipt Date: 20111201
  Transmission Date: 20120403
  Serious: Yes (Hospitalization, Other)
  Sender: FDA-Public Use
  Company Number: DE-BAYER-2011-115365

PATIENT
  Age: 55 Year
  Sex: Male

DRUGS (4)
  1. 4SC-201 (RESMINOSTAT) [Suspect]
     Indication: HEPATIC NEOPLASM MALIGNANT
     Dosage: 400 MG DAILY DOSE
     Route: 048
     Dates: start: 20111028, end: 20111110
  2. THIAZIDES [Concomitant]
  3. SORAFENIB (RAF KINASE INHIBITOR) [Suspect]
     Indication: HEPATIC NEOPLASM MALIGNANT
     Dosage: DAILY DOSE 400 MG
     Route: 048
     Dates: start: 20111028, end: 20111110
  4. TRIAMTEREN [Concomitant]

REACTIONS (5)
  - RENAL FAILURE ACUTE [None]
  - C-REACTIVE PROTEIN INCREASED [None]
  - LEUKOCYTOSIS [None]
  - THROMBOCYTOSIS [None]
  - HYPERKALAEMIA [None]
